FAERS Safety Report 5154192-X (Version None)
Quarter: 2006Q4

REPORT INFORMATION
  Report Type: 
  Country: None (occurrence: None)
  Receive Date: 20061120
  Receipt Date: 20061107
  Transmission Date: 20070319
  Serious: Yes (Other)
  Sender: FDA-Public Use
  Company Number: PHMT2006CA02102

PATIENT
  Sex: Female

DRUGS (2)
  1. ESTRADOT [Suspect]
     Dosage: 100
     Route: 062
     Dates: start: 20050401
  2. ESTRADOT [Suspect]
     Dosage: 50
     Route: 062
     Dates: start: 20050401

REACTIONS (3)
  - PHARMACEUTICAL PRODUCT COMPLAINT [None]
  - PRURITUS [None]
  - PRURITUS GENERALISED [None]
